FAERS Safety Report 4616226-8 (Version None)
Quarter: 2005Q1

REPORT INFORMATION
  Report Type: 
  Country: None (occurrence: None)
  Receive Date: 20050321
  Receipt Date: 20050307
  Transmission Date: 20050727
  Serious: Yes (Hospitalization)
  Sender: FDA-Public Use
  Company Number: 2005-126237-NL

PATIENT
  Age: 78 Year
  Sex: Female
  Weight: 50 kg

DRUGS (4)
  1. REMERON [Suspect]
     Indication: DEPRESSION
     Dosage: 7.5 MG DAILY ORAL, AT BEDTIME
     Route: 048
     Dates: start: 20050125, end: 20050203
  2. PROCARDIA XL [Concomitant]
  3. ASPIRIN EC NI [Concomitant]
  4. TYLENOL NI [Concomitant]

REACTIONS (6)
  - ASTHENIA [None]
  - DIFFICULTY IN WALKING [None]
  - DYSARTHRIA [None]
  - HEADACHE [None]
  - INSOMNIA [None]
  - MYALGIA [None]
